FAERS Safety Report 10015307 (Version 1)
Quarter: 2014Q1

REPORT INFORMATION
  Report Type: Spontaneous
  Country: US (occurrence: US)
  Receive Date: 20140317
  Receipt Date: 20140317
  Transmission Date: 20141002
  Serious: No
  Sender: FDA-Public Use
  Company Number: US-PFIZER INC-2014074122

PATIENT
  Age: 42 Year
  Sex: Female
  Weight: 81.63 kg

DRUGS (3)
  1. ADVIL [Suspect]
     Indication: HEADACHE
     Dosage: 200 MG, TWICE A DAY
     Dates: start: 201312
  2. ADVIL [Suspect]
     Indication: DYSMENORRHOEA
  3. SYNTHROID [Concomitant]
     Indication: HYPOTHYROIDISM
     Dosage: UNK

REACTIONS (5)
  - Drug hypersensitivity [Unknown]
  - Swelling face [Unknown]
  - Eye swelling [Unknown]
  - Lip swelling [Unknown]
  - Migraine [Unknown]
